FAERS Safety Report 5535287-5 (Version None)
Quarter: 2007Q4

REPORT INFORMATION
  Report Type: 
  Country: None (occurrence: None)
  Receive Date: 20071204
  Receipt Date: 20071204
  Transmission Date: 20080405
  Serious: Yes (Other)
  Sender: FDA-Public Use
  Company Number: None

PATIENT
  Age: 46 Year
  Sex: Male
  Weight: 72.5755 kg

DRUGS (1)
  1. ZICAM ZICAM [Suspect]
     Indication: NASOPHARYNGITIS
     Dosage: ONCE IN EACH NASAL ONCE NASAL
     Route: 045
     Dates: start: 20071026, end: 20071026

REACTIONS (2)
  - AGEUSIA [None]
  - HYPOSMIA [None]
